FAERS Safety Report 6833731-4 (Version None)
Quarter: 2010Q3

REPORT INFORMATION
  Report Type: 
  Country: None (occurrence: None)
  Receive Date: 20100712
  Receipt Date: 20070402
  Transmission Date: 20110219
  Serious: No
  Sender: FDA-Public Use
  Company Number: US-PFIZER INC-2007026979

PATIENT
  Sex: Female
  Weight: 53.52 kg

DRUGS (2)
  1. CHANTIX [Suspect]
     Indication: SMOKING CESSATION THERAPY
     Route: 048
     Dates: start: 20070308, end: 20070326
  2. MOTRIN [Concomitant]

REACTIONS (2)
  - CONSTIPATION [None]
  - FLATULENCE [None]
